FAERS Safety Report 4544820-1 (Version None)
Quarter: 2005Q1

REPORT INFORMATION
  Report Type: 
  Country: None (occurrence: None)
  Receive Date: 20050104
  Receipt Date: 20041222
  Transmission Date: 20050727
  Serious: No
  Sender: FDA-Public Use
  Company Number: RENA-11239

PATIENT
  Age: 56 Year
  Sex: Female

DRUGS (1)
  1. RENAGEL [Suspect]
     Indication: HYPERPHOSPHATAEMIA
     Dosage: 1 G TID PO
     Route: 048
     Dates: start: 20040901, end: 20041124

REACTIONS (1)
  - ILEUS [None]
